FAERS Safety Report 8008615-9 (Version None)
Quarter: 2011Q4

REPORT INFORMATION
  Report Type: 
  Country: None (occurrence: None)
  Receive Date: 20111227
  Receipt Date: 20111213
  Transmission Date: 20120403
  Serious: Yes (Other)
  Sender: FDA-Public Use
  Company Number: AR-ROCHE-1023272

PATIENT
  Sex: Male

DRUGS (2)
  1. AVASTIN [Concomitant]
  2. LUCENTIS [Suspect]
     Indication: THROMBOSIS
     Route: 050

REACTIONS (2)
  - CYST [None]
  - DRUG INEFFECTIVE [None]
